FAERS Safety Report 22314727 (Version 1)
Quarter: 2023Q2

REPORT INFORMATION
  Report Type: Spontaneous
  Country: US (occurrence: None)
  Receive Date: 20230512
  Receipt Date: 20230512
  Transmission Date: 20230722
  Serious: No
  Sender: FDA-Public Use
  Company Number: None

PATIENT

DRUGS (2)
  1. HESPAN [Suspect]
     Active Substance: HETASTARCH\SODIUM CHLORIDE
     Route: 042
  2. HESPAN [Suspect]
     Active Substance: HETASTARCH\SODIUM CHLORIDE
     Dosage: OTHER STRENGTH : 20,000 UNITS/500 M;?
     Route: 042

REACTIONS (2)
  - Product name confusion [None]
  - Product name confusion [None]
